FAERS Safety Report 14769673 (Version 1)
Quarter: 2018Q2

REPORT INFORMATION
  Report Type: Spontaneous
  Country: FR (occurrence: FR)
  Receive Date: 20180417
  Receipt Date: 20180417
  Transmission Date: 20180711
  Serious: Yes (Other)
  Sender: FDA-Public Use
  Company Number: FR-BAYER-2018-070681

PATIENT
  Age: 28 Year
  Sex: Female
  Weight: 74 kg

DRUGS (1)
  1. MIRENA [Suspect]
     Active Substance: LEVONORGESTREL
     Indication: CONTRACEPTION
     Dosage: 20 MCG/24HR, CONT
     Route: 015
     Dates: start: 20150505

REACTIONS (7)
  - Amnesia [Not Recovered/Not Resolved]
  - Bradycardia [Not Recovered/Not Resolved]
  - Tachycardia [Not Recovered/Not Resolved]
  - Speech disorder [Not Recovered/Not Resolved]
  - Vertigo [Not Recovered/Not Resolved]
  - Irritability [Not Recovered/Not Resolved]
  - Disturbance in attention [Not Recovered/Not Resolved]

NARRATIVE: CASE EVENT DATE: 201508
